FAERS Safety Report 6962734-4 (Version None)
Quarter: 2010Q3

REPORT INFORMATION
  Report Type: 
  Country: None (occurrence: None)
  Receive Date: 20100831
  Receipt Date: 20100825
  Transmission Date: 20110219
  Serious: Yes (Life-Threatening, Hospitalization, Disabling)
  Sender: FDA-Public Use
  Company Number: 2010SP046212

PATIENT
  Sex: Male

DRUGS (1)
  1. INTEGRILIN [Suspect]
     Indication: CORONARY ARTERY DISEASE

REACTIONS (4)
  - DEVICE MALFUNCTION [None]
  - DIALYSIS [None]
  - OVERDOSE [None]
  - RENAL FAILURE [None]
